FAERS Safety Report 13685422 (Version 5)
Quarter: 2019Q2

REPORT INFORMATION
  Report Type: Report from Study
  Country: CO (occurrence: CO)
  Receive Date: 20170623
  Receipt Date: 20190411
  Transmission Date: 20190711
  Serious: Yes (Hospitalization, Other)
  Sender: FDA-Public Use
  Company Number: CO-INCYTE CORPORATION-2017IN004891

PATIENT

DRUGS (4)
  1. JAKAVI [Suspect]
     Active Substance: RUXOLITINIB
     Dosage: 20 MG,(4 TABLETS OF 5 MG) QD (ONCE DAILY)
     Route: 048
  2. JAKAVI [Suspect]
     Active Substance: RUXOLITINIB
     Dosage: 10 MG, (2 TABLETS OF 5 MG) QD (ONCE DAILY)
     Route: 048
  3. JAKAVI [Suspect]
     Active Substance: RUXOLITINIB
     Dosage: 5 MG, UNK (TWICE A DAY/EVERY 12 HOURS)
     Route: 048
  4. JAKAVI [Suspect]
     Active Substance: RUXOLITINIB
     Indication: PRIMARY MYELOFIBROSIS
     Dosage: 15 MG, Q12H
     Route: 048
     Dates: start: 20160215

REACTIONS (11)
  - Diarrhoea haemorrhagic [Unknown]
  - Weight increased [Unknown]
  - Influenza [Unknown]
  - Malaise [Unknown]
  - Tinnitus [Unknown]
  - Haemorrhoids [Unknown]
  - Platelet count decreased [Unknown]
  - Deafness [Unknown]
  - Inappropriate schedule of product administration [Unknown]
  - Wound infection [Unknown]
  - Haemoglobin decreased [Unknown]
